FAERS Safety Report 22650693 (Version 1)
Quarter: 2023Q2

REPORT INFORMATION
  Report Type: Spontaneous
  Country: US (occurrence: US)
  Receive Date: 20230628
  Receipt Date: 20230628
  Transmission Date: 20230721
  Serious: No
  Sender: FDA-Public Use
  Company Number: US-BRISTOL-MYERS SQUIBB COMPANY-2023-090805

PATIENT
  Age: 73 Year
  Sex: Male
  Weight: 112.49 kg

DRUGS (1)
  1. REVLIMID [Suspect]
     Active Substance: LENALIDOMIDE
     Indication: Plasma cell myeloma
     Dosage: FREQ: QD 21D ON 7D OFF
     Route: 048

REACTIONS (4)
  - Rash [Unknown]
  - Pruritus [Unknown]
  - Skin swelling [Unknown]
  - Oxygen saturation decreased [Unknown]
